FAERS Safety Report 5002751-7 (Version None)
Quarter: 2006Q2

REPORT INFORMATION
  Report Type: 
  Country: None (occurrence: None)
  Receive Date: 20060516
  Receipt Date: 20060503
  Transmission Date: 20061013
  Serious: Yes (Hospitalization)
  Sender: FDA-Public Use
  Company Number: US-KINGPHARMUSA00001-K200600563

PATIENT
  Age: 80 Year
  Sex: Male

DRUGS (4)
  1. ALTACE [Suspect]
     Dosage: 1.25 MG, QD
     Route: 048
     Dates: end: 20050915
  2. LASILIX [Suspect]
     Dosage: 160 MG, QD
     Route: 048
     Dates: end: 20050915
  3. LASILIX [Suspect]
     Dosage: UNK, UNK
     Route: 048
  4. PREVISCAN [Concomitant]
     Dosage: UNK, UNK
     Route: 048
     Dates: end: 20050915

REACTIONS (7)
  - BLOOD CREATININE INCREASED [None]
  - DEHYDRATION [None]
  - DIARRHOEA [None]
  - DRUG INTERACTION [None]
  - DRUG TOXICITY [None]
  - INTERNATIONAL NORMALISED RATIO INCREASED [None]
  - RENAL FAILURE [None]
